FAERS Safety Report 9844540 (Version 1)
Quarter: 2014Q1

REPORT INFORMATION
  Report Type: Spontaneous
  Country: GB (occurrence: None)
  Receive Date: 20140122
  Receipt Date: 20140122
  Transmission Date: 20141002
  Serious: Yes (Other)
  Sender: FDA-Public Use
  Company Number: KAD201401-000043

PATIENT
  Age: 55 Year
  Sex: Male

DRUGS (9)
  1. RIBAVIRIN (RIBAVIRIN) [Suspect]
     Indication: HEPATITIS C
     Dosage: IN WEEK 1 TO 5
  2. TELAPREVIR (TELAPREVIR) [Suspect]
     Indication: HEPATITIS C
     Route: 048
  3. ASPIRIN (ACETYLSALICYLIC ACID) [Concomitant]
  4. ATENOLOL (ATENOLOL) [Concomitant]
  5. BENDOFLUMETHIAZIDE (BENDOFLUMETHIAZIDE) [Concomitant]
  6. CANDESARTAN (CANDESARTAN) [Concomitant]
  7. ERYTHROPOIETIN (ERYTHROPOIETIN) [Concomitant]
  8. INTERFERON ALFA (INTERFERON ALFA) [Concomitant]
  9. SIMVASTATIN (SIMVASTATIN) [Concomitant]

REACTIONS (8)
  - Herpes zoster [None]
  - Haemoglobin decreased [None]
  - Hypotension [None]
  - Dyspnoea exertional [None]
  - Rash [None]
  - Dizziness [None]
  - Dizziness [None]
  - Pruritus [None]
